FAERS Safety Report 18164711 (Version 3)
Quarter: 2020Q4

REPORT INFORMATION
  Report Type: Report from Study
  Country: US (occurrence: US)
  Receive Date: 20200818
  Receipt Date: 20201008
  Transmission Date: 20210113
  Serious: No
  Sender: FDA-Public Use
  Company Number: US-009507513-2008USA009117

PATIENT
  Age: 38 Year
  Sex: Female
  Weight: 200.91 kg

DRUGS (1)
  1. IMPLANON [Suspect]
     Active Substance: ETONOGESTREL
     Indication: CONTRACEPTION
     Dosage: 1 IMPLANT
     Route: 059
     Dates: start: 20200811

REACTIONS (2)
  - Product use issue [Unknown]
  - Menorrhagia [Recovered/Resolved]

NARRATIVE: CASE EVENT DATE: 202008
